FAERS Safety Report 19904720 (Version 1)
Quarter: 2021Q4

REPORT INFORMATION
  Report Type: Spontaneous
  Country: US (occurrence: US)
  Receive Date: 20211001
  Receipt Date: 20211001
  Transmission Date: 20220303
  Serious: No
  Sender: FDA-Public Use
  Company Number: US-ALKERMES INC.-ALK-2021-004978

PATIENT
  Age: 42 Year
  Sex: Male
  Weight: 86.17 kg

DRUGS (4)
  1. VIVITROL [Suspect]
     Active Substance: NALTREXONE
     Indication: Alcoholism
     Dosage: INCOMPLETE DOSE ADMINISTERED
     Route: 030
     Dates: start: 20210922
  2. VIVITROL [Suspect]
     Active Substance: NALTREXONE
     Dosage: 380 MILLIGRAM, QMO
     Route: 030
     Dates: start: 20210830, end: 20210830
  3. VIVITROL [Suspect]
     Active Substance: NALTREXONE
     Dosage: 380 MILLIGRAM, QMO
     Route: 030
     Dates: start: 2021, end: 2021
  4. VITAMINS NOS [Concomitant]
     Active Substance: VITAMINS
     Indication: Product used for unknown indication
     Dosage: UNK
     Route: 065

REACTIONS (7)
  - Frustration tolerance decreased [Unknown]
  - Product preparation error [Recovered/Resolved]
  - Incorrect dose administered [Recovered/Resolved]
  - Inappropriate schedule of product administration [Recovered/Resolved]
  - Injection site reaction [Unknown]
  - Injection site pain [Unknown]
  - Needle issue [Recovered/Resolved]

NARRATIVE: CASE EVENT DATE: 20210922
